FAERS Safety Report 8911291 (Version 1)
Quarter: 2012Q4

REPORT INFORMATION
  Report Type: 
  Country: US (occurrence: US)
  Receive Date: 20121116
  Receipt Date: 20121116
  Transmission Date: 20130627
  Serious: No
  Sender: FDA-Public Use
  Company Number: US-GLAXOSMITHKLINE-A0995353A

PATIENT
  Age: 60 Year
  Sex: Female

DRUGS (1)
  1. VOTRIENT [Suspect]
     Indication: RENAL CANCER
     Dosage: 600MG Per day
     Route: 065
     Dates: start: 20120901

REACTIONS (7)
  - Emotional disorder [Unknown]
  - Headache [Unknown]
  - Fatigue [Unknown]
  - Diarrhoea [Unknown]
  - Pain [Unknown]
  - Heart rate increased [Unknown]
  - Hair colour changes [Unknown]
